FAERS Safety Report 8757343 (Version 1)
Quarter: 2012Q4

REPORT INFORMATION
  Report Type: 
  Country: AU (occurrence: AU)
  Receive Date: 20120828
  Receipt Date: 20120828
  Transmission Date: 20130627
  Serious: Yes (Hospitalization)
  Sender: FDA-Public Use
  Company Number: AU-MYLANLABS-2012S1016961

PATIENT
  Age: 63 Year
  Sex: Male

DRUGS (1)
  1. PRAMIPEXOLE [Suspect]
     Indication: PARKINSON^S DISEASE
     Route: 065

REACTIONS (3)
  - Hypersexuality [Recovering/Resolving]
  - Chorea [Recovering/Resolving]
  - Penis injury [Recovering/Resolving]
